FAERS Safety Report 23835774 (Version 1)
Quarter: 2024Q2

REPORT INFORMATION
  Report Type: Spontaneous
  Country: FR (occurrence: FR)
  Receive Date: 20240509
  Receipt Date: 20240509
  Transmission Date: 20240716
  Serious: Yes (Other)
  Sender: FDA-Public Use
  Company Number: FR-ViiV Healthcare Limited-FR2024GSK003366

PATIENT
  Age: 60 Year
  Sex: Female

DRUGS (52)
  1. RITONAVIR [Suspect]
     Active Substance: RITONAVIR
     Indication: HIV infection
     Dosage: 600 MILLIGRAM, TWO TIMES A DAY
     Route: 048
     Dates: start: 201907
  2. RITONAVIR [Suspect]
     Active Substance: RITONAVIR
     Dosage: 100 MILLIGRAM, TWO TIMES A DAY
     Route: 048
  3. RITONAVIR [Suspect]
     Active Substance: RITONAVIR
     Dosage: UNK UNK, TWO TIMES A DAY
     Route: 065
     Dates: start: 20190820
  4. RITONAVIR [Suspect]
     Active Substance: RITONAVIR
     Dosage: UNK UNK, TWO TIMES A DAY
     Route: 065
     Dates: start: 20190919
  5. RITONAVIR [Suspect]
     Active Substance: RITONAVIR
     Dosage: UNK UNK, TWO TIMES A DAY
     Route: 065
     Dates: start: 20191121
  6. RITONAVIR [Suspect]
     Active Substance: RITONAVIR
     Dosage: UNK UNK, TWO TIMES A DAY
     Route: 065
     Dates: start: 20200311
  7. RITONAVIR [Suspect]
     Active Substance: RITONAVIR
     Dosage: UNK UNK, TWO TIMES A DAY
     Route: 065
     Dates: start: 20200713
  8. RITONAVIR [Suspect]
     Active Substance: RITONAVIR
     Dosage: UNK UNK, TWO TIMES A DAY
     Route: 065
     Dates: start: 20220524
  9. RITONAVIR [Suspect]
     Active Substance: RITONAVIR
     Dosage: UNK UNK, TWO TIMES A DAY
     Route: 065
     Dates: start: 20221017
  10. RITONAVIR [Suspect]
     Active Substance: RITONAVIR
     Dosage: UNK UNK, TWO TIMES A DAY
     Route: 065
     Dates: start: 20230121
  11. DARUNAVIR [Suspect]
     Active Substance: DARUNAVIR
     Indication: HIV infection
     Dosage: 100 MILLIGRAM, TWO TIMES A DAY
     Route: 048
     Dates: start: 201907
  12. DARUNAVIR [Suspect]
     Active Substance: DARUNAVIR
     Dosage: UNK
     Route: 065
     Dates: start: 20190820
  13. DARUNAVIR [Suspect]
     Active Substance: DARUNAVIR
     Dosage: UNK
     Route: 065
     Dates: start: 20190919
  14. DARUNAVIR [Suspect]
     Active Substance: DARUNAVIR
     Dosage: UNK
     Route: 065
     Dates: start: 20191121
  15. DARUNAVIR [Suspect]
     Active Substance: DARUNAVIR
     Dosage: UNK
     Route: 065
     Dates: start: 20200311
  16. DARUNAVIR [Suspect]
     Active Substance: DARUNAVIR
     Dosage: UNK
     Route: 065
     Dates: start: 20200713
  17. DARUNAVIR [Suspect]
     Active Substance: DARUNAVIR
     Dosage: UNK
     Route: 065
     Dates: start: 20220524
  18. DARUNAVIR [Suspect]
     Active Substance: DARUNAVIR
     Dosage: UNK
     Route: 065
     Dates: start: 20221017
  19. DARUNAVIR [Suspect]
     Active Substance: DARUNAVIR
     Dosage: UNK
     Route: 065
     Dates: start: 20230121
  20. DOLUTEGRAVIR [Suspect]
     Active Substance: DOLUTEGRAVIR
     Indication: HIV infection
     Dosage: 50 MILLIGRAM, ONCE A DAY
     Route: 048
     Dates: start: 20161214
  21. DOLUTEGRAVIR [Suspect]
     Active Substance: DOLUTEGRAVIR
     Dosage: UNK UNK, ONCE A DAY
     Route: 065
     Dates: start: 20171227
  22. DOLUTEGRAVIR [Suspect]
     Active Substance: DOLUTEGRAVIR
     Dosage: UNK UNK, ONCE A DAY
     Route: 065
     Dates: start: 20180907
  23. DOLUTEGRAVIR [Suspect]
     Active Substance: DOLUTEGRAVIR
     Dosage: UNK UNK, ONCE A DAY
     Route: 065
     Dates: start: 20180908
  24. DOLUTEGRAVIR [Suspect]
     Active Substance: DOLUTEGRAVIR
     Dosage: UNK UNK, ONCE A DAY
     Route: 065
     Dates: start: 20190502
  25. DOLUTEGRAVIR [Suspect]
     Active Substance: DOLUTEGRAVIR
     Dosage: UNK UNK, ONCE A DAY
     Route: 065
     Dates: start: 20190605
  26. DOLUTEGRAVIR [Suspect]
     Active Substance: DOLUTEGRAVIR
     Dosage: UNK UNK, ONCE A DAY
     Route: 065
     Dates: start: 20190625
  27. DOLUTEGRAVIR [Suspect]
     Active Substance: DOLUTEGRAVIR
     Dosage: UNK UNK, ONCE A DAY
     Route: 065
     Dates: start: 20190820
  28. DOLUTEGRAVIR [Suspect]
     Active Substance: DOLUTEGRAVIR
     Dosage: UNK UNK, TWO TIMES A DAY
     Route: 065
     Dates: start: 20190919
  29. DOLUTEGRAVIR [Suspect]
     Active Substance: DOLUTEGRAVIR
     Dosage: UNK UNK, TWO TIMES A DAY
     Route: 065
     Dates: start: 20191121
  30. DOLUTEGRAVIR [Suspect]
     Active Substance: DOLUTEGRAVIR
     Dosage: UNK UNK, TWO TIMES A DAY
     Route: 065
     Dates: start: 20200311
  31. DOLUTEGRAVIR [Suspect]
     Active Substance: DOLUTEGRAVIR
     Dosage: UNK UNK, TWO TIMES A DAY
     Route: 065
     Dates: start: 20200713
  32. DOLUTEGRAVIR [Suspect]
     Active Substance: DOLUTEGRAVIR
     Dosage: UNK UNK, TWO TIMES A DAY
     Route: 065
     Dates: start: 20220524
  33. DOLUTEGRAVIR [Suspect]
     Active Substance: DOLUTEGRAVIR
     Dosage: UNK UNK, TWO TIMES A DAY
     Route: 065
     Dates: start: 20221017
  34. DOLUTEGRAVIR [Suspect]
     Active Substance: DOLUTEGRAVIR
     Dosage: UNK UNK, TWO TIMES A DAY
     Route: 065
     Dates: start: 20230121
  35. EMTRICITABINE [Suspect]
     Active Substance: EMTRICITABINE
     Indication: HIV infection
     Dosage: 200 MILLIGRAM, ONCE A DAY
     Route: 048
  36. EMTRICITABINE [Suspect]
     Active Substance: EMTRICITABINE
     Dosage: UNK
     Route: 065
     Dates: start: 20161214
  37. EMTRICITABINE [Suspect]
     Active Substance: EMTRICITABINE
     Dosage: UNK
     Route: 065
     Dates: start: 20171227
  38. EMTRICITABINE [Suspect]
     Active Substance: EMTRICITABINE
     Dosage: UNK
     Route: 065
     Dates: start: 20180907
  39. EMTRICITABINE [Suspect]
     Active Substance: EMTRICITABINE
     Dosage: UNK
     Route: 065
     Dates: start: 20181008
  40. EMTRICITABINE [Suspect]
     Active Substance: EMTRICITABINE
     Dosage: UNK
     Route: 065
     Dates: start: 20190502
  41. EMTRICITABINE [Suspect]
     Active Substance: EMTRICITABINE
     Dosage: UNK
     Route: 065
     Dates: start: 20190605
  42. EMTRICITABINE [Suspect]
     Active Substance: EMTRICITABINE
     Dosage: UNK
     Route: 065
     Dates: start: 20190625
  43. EMTRICITABINE [Suspect]
     Active Substance: EMTRICITABINE
     Dosage: UNK
     Route: 065
     Dates: start: 20190820
  44. EMTRICITABINE [Suspect]
     Active Substance: EMTRICITABINE
     Dosage: UNK
     Route: 065
     Dates: start: 20190919
  45. EMTRICITABINE [Suspect]
     Active Substance: EMTRICITABINE
     Dosage: UNK
     Route: 065
     Dates: start: 20191121
  46. EMTRICITABINE [Suspect]
     Active Substance: EMTRICITABINE
     Dosage: UNK
     Route: 065
     Dates: start: 20200311
  47. EMTRICITABINE [Suspect]
     Active Substance: EMTRICITABINE
     Dosage: UNK
     Route: 065
     Dates: start: 20200713
  48. EMTRICITABINE [Suspect]
     Active Substance: EMTRICITABINE
     Dosage: UNK
     Route: 065
     Dates: start: 20220524
  49. EMTRICITABINE [Suspect]
     Active Substance: EMTRICITABINE
     Dosage: UNK
     Route: 065
     Dates: start: 20221017
  50. EMTRICITABINE [Suspect]
     Active Substance: EMTRICITABINE
     Dosage: UNK
     Route: 065
     Dates: start: 20230121
  51. RILPIVIRINE [Suspect]
     Active Substance: RILPIVIRINE
     Indication: HIV infection
     Dosage: 25 MILLIGRAM, ONCE A DAY
     Route: 048
     Dates: start: 2016
  52. CISPLATIN [Concomitant]
     Active Substance: CISPLATIN
     Indication: Squamous cell carcinoma
     Dosage: ONCE EVERY 3 WEEKS
     Route: 065
     Dates: start: 20180918

REACTIONS (2)
  - Viral load increased [Recovered/Resolved]
  - Wrong technique in product usage process [Unknown]
